FAERS Safety Report 19017169 (Version 1)
Quarter: 2021Q1

REPORT INFORMATION
  Report Type: Spontaneous
  Country: US (occurrence: US)
  Receive Date: 20210316
  Receipt Date: 20210316
  Transmission Date: 20210420
  Serious: Yes (Hospitalization)
  Sender: FDA-Public Use
  Company Number: None

PATIENT
  Age: 68 Year
  Sex: Female
  Weight: 66.1 kg

DRUGS (2)
  1. CARBOPLATIN. [Suspect]
     Active Substance: CARBOPLATIN
     Dates: end: 20210210
  2. TAXOL [Suspect]
     Active Substance: PACLITAXEL
     Dates: end: 20210210

REACTIONS (2)
  - Hypotension [None]
  - Malaise [None]

NARRATIVE: CASE EVENT DATE: 20210305
